FAERS Safety Report 9266908 (Version 1)
Quarter: 2013Q2

REPORT INFORMATION
  Report Type: Spontaneous
  Country: US (occurrence: None)
  Receive Date: 20130502
  Receipt Date: 20130502
  Transmission Date: 20140414
  Serious: Yes (Death)
  Sender: FDA-Public Use
  Company Number: None

PATIENT
  Age: 63 Year
  Sex: Male
  Weight: 75.21 kg

DRUGS (3)
  1. BEVACIZUMAB (RHUMAB VEGF) (704865) [Suspect]
     Dates: end: 20130321
  2. CARBOPLATIN [Suspect]
     Dates: end: 20130321
  3. PACLITAXEL (TAXOL) [Suspect]
     Dates: end: 20130321

REACTIONS (15)
  - Neuropathy peripheral [None]
  - Infection [None]
  - Lung neoplasm malignant [None]
  - Disease progression [None]
  - Pulmonary mass [None]
  - Fatigue [None]
  - Dyspnoea [None]
  - Cough [None]
  - Decreased appetite [None]
  - Oedema peripheral [None]
  - Anaemia [None]
  - Leukocytosis [None]
  - Granulocytosis [None]
  - Wrong drug administered [None]
  - Haematemesis [None]
